FAERS Safety Report 6072787-6 (Version None)
Quarter: 2009Q1

REPORT INFORMATION
  Report Type: 
  Country: None (occurrence: None)
  Receive Date: 20090205
  Receipt Date: 20080308
  Transmission Date: 20090719
  Serious: Yes (Other)
  Sender: FDA-Public Use
  Company Number: 2008AP000624

PATIENT

DRUGS (1)
  1. LISINOPRIL [Suspect]
     Indication: HYPERTENSION
     Dosage: 40 MG; QD

REACTIONS (2)
  - AZOTAEMIA [None]
  - HYPERPARATHYROIDISM SECONDARY [None]
